FAERS Safety Report 6406801-2 (Version None)
Quarter: 2009Q4

REPORT INFORMATION
  Report Type: 
  Country: None (occurrence: None)
  Receive Date: 20091020
  Receipt Date: 20091008
  Transmission Date: 20100525
  Serious: Yes (Disabling)
  Sender: FDA-Public Use
  Company Number: US-PFIZER INC-2009280681

PATIENT
  Sex: Female
  Weight: 54.5 kg

DRUGS (6)
  1. VARENICLINE TARTRATE [Suspect]
     Dosage: UNK
     Dates: start: 20090728, end: 20090821
  2. VITAMIN B12 AND FOLIC ACID [Concomitant]
     Indication: LETHARGY
     Dosage: UNK
     Route: 048
     Dates: start: 20080601, end: 20090801
  3. IRON [Concomitant]
     Indication: ANAEMIA
     Dosage: UNK
     Route: 048
     Dates: start: 20090601, end: 20090701
  4. MULTI-VITAMINS [Concomitant]
     Indication: SUPPLEMENTATION THERAPY
     Dosage: UNK
     Route: 048
     Dates: start: 20000101
  5. IDEBENONE [Concomitant]
     Indication: FRIEDREICH'S ATAXIA
     Dosage: UNK
     Route: 048
     Dates: start: 20050701
  6. DROSPIRENONE AND EHTINYL ESTRADIOL [Concomitant]
     Indication: CONTRACEPTION
     Dosage: UNK
     Route: 048
     Dates: start: 20080501, end: 20090801

REACTIONS (2)
  - BALANCE DISORDER [None]
  - GAIT DISTURBANCE [None]
